FAERS Safety Report 13142147 (Version 1)
Quarter: 2017Q1

REPORT INFORMATION
  Report Type: Spontaneous
  Country: US (occurrence: US)
  Receive Date: 20170123
  Receipt Date: 20170123
  Transmission Date: 20170428
  Serious: Yes (Other)
  Sender: FDA-Public Use
  Company Number: None

PATIENT
  Age: 29 Year
  Sex: Female
  Weight: 72.64 kg

DRUGS (3)
  1. VITAMIN D3 [Concomitant]
     Active Substance: CHOLECALCIFEROL
  2. NEXPLANON [Suspect]
     Active Substance: ETONOGESTREL
  3. VITAMIN B12 [Concomitant]
     Active Substance: CYANOCOBALAMIN

REACTIONS (8)
  - Disturbance in attention [None]
  - Fatigue [None]
  - Weight increased [None]
  - Hypertension [None]
  - Mood swings [None]
  - Muscle spasms [None]
  - Nausea [None]
  - Abdominal pain [None]

NARRATIVE: CASE EVENT DATE: 20170122
